FAERS Safety Report 9819944 (Version 1)
Quarter: 2014Q1

REPORT INFORMATION
  Report Type: Spontaneous
  Country: US (occurrence: None)
  Receive Date: 20140113
  Receipt Date: 20140113
  Transmission Date: 20141002
  Serious: Yes (Other)
  Sender: FDA-Public Use
  Company Number: None

PATIENT
  Age: 88 Year
  Sex: Female

DRUGS (1)
  1. RISPERDAL [Suspect]
     Indication: DEMENTIA
     Dates: start: 20131101, end: 20140112

REACTIONS (7)
  - Lethargy [None]
  - Asthenia [None]
  - Weight decreased [None]
  - Bedridden [None]
  - Decreased appetite [None]
  - Musculoskeletal stiffness [None]
  - Confusional state [None]
